FAERS Safety Report 4326501-2 (Version None)
Quarter: 2004Q1

REPORT INFORMATION
  Report Type: 
  Country: None (occurrence: None)
  Receive Date: 20040330
  Receipt Date: 20040319
  Transmission Date: 20041129
  Serious: Yes (Hospitalization)
  Sender: FDA-Public Use
  Company Number: AT-BRISTOL-MYERS SQUIBB COMPANY-12537346

PATIENT
  Age: 66 Year
  Sex: Female

DRUGS (7)
  1. CARBOPLATIN [Suspect]
     Indication: OVARIAN CANCER
     Dosage: CYCLE 1: 30-OCT-2003
     Route: 042
     Dates: start: 20040204, end: 20040204
  2. PACLITAXEL [Suspect]
     Indication: OVARIAN CANCER
     Dosage: CYCLE 1: 30-OCT-2003
     Route: 042
     Dates: start: 20040204, end: 20040204
  3. INTERFERON GAMMA [Suspect]
     Indication: OVARIAN CANCER
     Dosage: INITIAL DOSE: 30-OCT-2003
     Route: 058
     Dates: start: 20040204, end: 20040221
  4. NABILONE [Concomitant]
  5. PANTOLOC [Concomitant]
  6. ZOFRAN [Concomitant]
  7. MAGNOSOLV [Concomitant]
     Dates: start: 20031212

REACTIONS (4)
  - ANAEMIA [None]
  - ASTHENIA [None]
  - FAECALOMA [None]
  - GENERAL PHYSICAL CONDITION ABNORMAL [None]
